FAERS Safety Report 4822904-8 (Version None)
Quarter: 2005Q4

REPORT INFORMATION
  Report Type: 
  Country: None (occurrence: None)
  Receive Date: 20051104
  Receipt Date: 20051027
  Transmission Date: 20060501
  Serious: Yes (Hospitalization)
  Sender: FDA-Public Use
  Company Number: 218956

PATIENT
  Age: 71 Year
  Sex: Male
  Weight: 70 kg

DRUGS (5)
  1. AVASTIN [Suspect]
     Indication: COLORECTAL CANCER METASTATIC
     Dosage: 5 MG/KG, INTRAVENOUS
     Route: 042
     Dates: start: 20050708, end: 20051014
  2. ERLOTINIB (ERLOTINIB) TABLET, 100MG [Suspect]
     Indication: COLORECTAL CANCER METASTATIC
     Dosage: 100 MG, QD, ORAL
     Route: 048
     Dates: start: 20050708, end: 20051019
  3. FLUOROURACIL [Suspect]
     Indication: COLORECTAL CANCER METASTATIC
     Dosage: 250 MG/M2, IV BOLUS
     Route: 040
     Dates: start: 20050708, end: 20051014
  4. OXALIPLATIN (OXALIPLATIN) [Suspect]
     Indication: COLORECTAL CANCER METASTATIC
     Dosage: 50 MG/M2, INTRAVENOUS
     Route: 042
     Dates: start: 20050708, end: 20051014
  5. FLUOROURACIL [Suspect]
     Dosage: 1600 MG/M2, INTRAVENOUS
     Route: 042
     Dates: start: 20050708, end: 20051014

REACTIONS (9)
  - ANAEMIA [None]
  - ASTHENIA [None]
  - CONFUSIONAL STATE [None]
  - DEHYDRATION [None]
  - DIARRHOEA [None]
  - FAILURE TO THRIVE [None]
  - HAEMATOCRIT DECREASED [None]
  - LABORATORY TEST INTERFERENCE [None]
  - ORTHOSTATIC HYPOTENSION [None]
